FAERS Safety Report 9911864 (Version 2)
Quarter: 2014Q1

REPORT INFORMATION
  Report Type: Spontaneous
  Country: US (occurrence: US)
  Receive Date: 20140219
  Receipt Date: 20140219
  Transmission Date: 20141002
  Serious: No
  Sender: FDA-Public Use
  Company Number: US-MYLANLABS-2013S1010687

PATIENT
  Age: 2 Year
  Sex: Male
  Weight: 13.15 kg

DRUGS (1)
  1. EPIPEN [Suspect]
     Dosage: (DOSE UNIT: 1:2000, 0.3 ML), (DAILY DOSE: 0.5 MG)
     Route: 058
     Dates: start: 20130508, end: 20130508

REACTIONS (1)
  - Accidental exposure to product [Recovered/Resolved]
